FAERS Safety Report 7495929-4 (Version None)
Quarter: 2011Q2

REPORT INFORMATION
  Report Type: 
  Country: None (occurrence: None)
  Receive Date: 20110523
  Receipt Date: 20110516
  Transmission Date: 20111010
  Serious: Yes (Life-Threatening, Hospitalization)
  Sender: FDA-Public Use
  Company Number: US-SANOFI-AVENTIS-2010SA027823

PATIENT
  Age: 63 Year
  Sex: Male
  Weight: 104.5 kg

DRUGS (22)
  1. APREPITANT [Suspect]
     Dates: start: 20100422, end: 20100422
  2. FLAGYL [Concomitant]
     Dates: start: 20100506
  3. CELEBREX [Concomitant]
  4. DEXAMETHASONE [Concomitant]
     Indication: PROPHYLAXIS
     Dates: start: 20100401, end: 20100422
  5. ALOXI [Concomitant]
     Indication: PROPHYLAXIS
     Dates: start: 20100401, end: 20100422
  6. LOVENOX [Concomitant]
     Indication: DEEP VEIN THROMBOSIS
  7. DIPHENHYDRAMINE HCL [Concomitant]
     Dates: start: 20100422, end: 20100422
  8. CABAZITAXEL [Suspect]
     Route: 042
     Dates: start: 20100422, end: 20100422
  9. FAMOTIDINE [Concomitant]
     Indication: PROPHYLAXIS
     Dates: start: 20100401, end: 20100422
  10. CISPLATIN [Suspect]
     Route: 042
     Dates: start: 20100401, end: 20100401
  11. APREPITANT [Suspect]
     Dates: start: 20100424, end: 20100424
  12. WARFARIN SODIUM [Concomitant]
  13. CYMBALTA [Concomitant]
  14. DIPHENHYDRAMINE HCL [Concomitant]
     Indication: PROPHYLAXIS
     Dates: start: 20100401, end: 20100422
  15. APREPITANT [Suspect]
     Dates: start: 20100423, end: 20100423
  16. HYDROCHLOROTHIAZIDE [Concomitant]
  17. CIPROFLOXACIN [Concomitant]
     Dates: start: 20100506
  18. CABAZITAXEL [Suspect]
     Route: 042
     Dates: start: 20100401, end: 20100401
  19. MULTI-VITAMINS [Concomitant]
  20. NORMAL SALINE [Concomitant]
     Indication: PROPHYLAXIS
     Route: 042
     Dates: start: 20100401, end: 20100422
  21. DEXAMETHASONE [Concomitant]
     Dates: start: 20100422, end: 20100422
  22. CISPLATIN [Suspect]
     Route: 042
     Dates: start: 20100422, end: 20100422

REACTIONS (3)
  - DUODENAL ULCER [None]
  - DIVERTICULUM INTESTINAL HAEMORRHAGIC [None]
  - SMALL INTESTINAL HAEMORRHAGE [None]
